FAERS Safety Report 12335091 (Version 2)
Quarter: 2016Q2

REPORT INFORMATION
  Report Type: Spontaneous
  Country: DE (occurrence: DE)
  Receive Date: 20160504
  Receipt Date: 20160526
  Transmission Date: 20160815
  Serious: Yes (Other)
  Sender: FDA-Public Use
  Company Number: DE-MYLANLABS-2016M1018326

PATIENT

DRUGS (1)
  1. FASTJEKT [Suspect]
     Active Substance: EPINEPHRINE
     Indication: FOOD ALLERGY
     Dosage: UNK

REACTIONS (2)
  - Device malfunction [Not Recovered/Not Resolved]
  - Device failure [Unknown]
